FAERS Safety Report 14617048 (Version 1)
Quarter: 2018Q1

REPORT INFORMATION
  Report Type: Spontaneous
  Country: CN (occurrence: CN)
  Receive Date: 20180309
  Receipt Date: 20180309
  Transmission Date: 20180509
  Serious: Yes (Death, Hospitalization)
  Sender: FDA-Public Use
  Company Number: PHHY2018CN037777

PATIENT
  Age: 63 Year
  Sex: Female

DRUGS (1)
  1. CARBAMAZEPINE. [Suspect]
     Active Substance: CARBAMAZEPINE
     Indication: TRIGEMINAL NEURALGIA
     Route: 048

REACTIONS (8)
  - Drug hypersensitivity [Fatal]
  - Drug-induced liver injury [Fatal]
  - Dyspnoea [Fatal]
  - Toxic epidermal necrolysis [Fatal]
  - Blister [Fatal]
  - Respiratory failure [Fatal]
  - Restlessness [Fatal]
  - Anaemia [Fatal]
